FAERS Safety Report 5319772-7 (Version None)
Quarter: 2007Q1

REPORT INFORMATION
  Report Type: 
  Country: None (occurrence: None)
  Receive Date: 20070205
  Receipt Date: 20060825
  Transmission Date: 20070707
  Serious: Yes (Other)
  Sender: FDA-Public Use
  Company Number: PHEH2006US10998

PATIENT
  Age: 7 Year
  Sex: Female

DRUGS (2)
  1. RITALIN [Suspect]
     Dosage: SEE IMAGE
     Route: 048
     Dates: start: 20040101, end: 20040301
  2. RITALIN [Suspect]
     Dosage: SEE IMAGE
     Route: 048
     Dates: start: 20040401, end: 20040801

REACTIONS (3)
  - CRYING [None]
  - DEPRESSED MOOD [None]
  - SOCIAL AVOIDANT BEHAVIOUR [None]
